FAERS Safety Report 21095563 (Version 16)
Quarter: 2024Q1

REPORT INFORMATION
  Report Type: Spontaneous
  Country: US (occurrence: US)
  Receive Date: 20220718
  Receipt Date: 20240305
  Transmission Date: 20240410
  Serious: Yes (Hospitalization, Other)
  Sender: FDA-Public Use
  Company Number: US-PFIZER INC-PV202200007587

PATIENT
  Age: 75 Year
  Sex: Female
  Weight: 51.71 kg

DRUGS (15)
  1. IBRANCE [Suspect]
     Active Substance: PALBOCICLIB
     Indication: Breast cancer metastatic
     Dosage: 125 MG TABLET ONE A DAY FOR THREE WEEKS (WITH OR WITHOUT FOOD) AND THEN ONE WEEK OFF
     Dates: start: 20220524, end: 202211
  2. IBRANCE [Suspect]
     Active Substance: PALBOCICLIB
     Dosage: 125 MG TABLET ONE A DAY FOR THREE WEEKS (WITH OR WITHOUT FOOD) AND THEN ONE WEEK OFF
     Route: 048
     Dates: end: 20230615
  3. IBRANCE [Suspect]
     Active Substance: PALBOCICLIB
     Dosage: 125 MG TABLET ONE A DAY FOR THREE WEEKS (WITH OR WITHOUT FOOD) AND THEN ONE WEEK OFF
     Route: 048
     Dates: end: 20230620
  4. IBRANCE [Suspect]
     Active Substance: PALBOCICLIB
     Dosage: 125 MG TABLET ONE A DAY FOR THREE WEEKS (WITH OR WITHOUT FOOD) AND THEN ONE WEEK OFF
     Route: 048
  5. IBRANCE [Suspect]
     Active Substance: PALBOCICLIB
     Dosage: 125 MG TABLET ONE A DAY FOR THREE WEEKS (WITH OR WITHOUT FOOD) AND THEN ONE WEEK OFF
     Route: 048
  6. CALCIUM [Concomitant]
     Active Substance: CALCIUM
     Dosage: UNK
  7. FEMARA [Concomitant]
     Active Substance: LETROZOLE
     Indication: Blood oestrogen
     Dosage: 2.5 MG, 1X/DAY, WITH OR WITHOUT FOOD
     Route: 048
     Dates: start: 20220510
  8. FOLIC ACID [Concomitant]
     Active Substance: FOLIC ACID
     Dosage: 1 MG, 1X/DAY
     Dates: start: 1994
  9. HYDROXYCHLOROQUINE [Concomitant]
     Active Substance: HYDROXYCHLOROQUINE
     Dosage: UNK
     Dates: start: 2015
  10. IRON [Concomitant]
     Active Substance: IRON
     Dosage: UNK
  11. LIOTHYRONINE [Concomitant]
     Active Substance: LIOTHYRONINE
     Indication: Thyroid disorder
     Dosage: UNK
     Dates: start: 2009
  12. LEVOTHYROXINE [Concomitant]
     Active Substance: LEVOTHYROXINE\LEVOTHYROXINE SODIUM
     Indication: Thyroid disorder
     Dosage: UNK
  13. METHOTREXATE [Concomitant]
     Active Substance: METHOTREXATE
     Indication: Rheumatoid arthritis
     Dosage: 2.5 MG 8-1 DAY/WEEK
     Dates: start: 1994
  14. SULFASALAZINE [Concomitant]
     Active Substance: SULFASALAZINE
     Dosage: UNK
     Dates: start: 2015
  15. SYNTHROID [Concomitant]
     Active Substance: LEVOTHYROXINE SODIUM
     Dosage: UNK
     Dates: start: 1999

REACTIONS (24)
  - Cataract [Recovered/Resolved]
  - Foot operation [Unknown]
  - Insomnia [Not Recovered/Not Resolved]
  - Headache [Recovered/Resolved]
  - Night sweats [Recovered/Resolved]
  - Hot flush [Recovered/Resolved]
  - Initial insomnia [Not Recovered/Not Resolved]
  - Pruritus [Recovered/Resolved]
  - Wound haemorrhage [Recovered/Resolved]
  - Alopecia [Recovered/Resolved]
  - Weight increased [Recovered/Resolved]
  - Fatigue [Not Recovered/Not Resolved]
  - Nail disorder [Not Recovered/Not Resolved]
  - Onychoclasis [Not Recovered/Not Resolved]
  - Pigmentation disorder [Not Recovered/Not Resolved]
  - Red blood cell count decreased [Not Recovered/Not Resolved]
  - White blood cell count decreased [Not Recovered/Not Resolved]
  - Rapid eye movements sleep abnormal [Not Recovered/Not Resolved]
  - Rash macular [Recovered/Resolved]
  - Nocturia [Not Recovered/Not Resolved]
  - Rash erythematous [Recovered/Resolved]
  - Bronchitis chronic [Unknown]
  - Asthenia [Unknown]
  - Arthropathy [Unknown]

NARRATIVE: CASE EVENT DATE: 20200601
